FAERS Safety Report 9175743 (Version 2)
Quarter: 2013Q4

REPORT INFORMATION
  Report Type: Spontaneous
  Country: JP (occurrence: JP)
  Receive Date: 20120913
  Receipt Date: 20131031
  Transmission Date: 20140711
  Serious: Yes (Other)
  Sender: FDA-Public Use
  Company Number: JP-009507513-1209JPN000727

PATIENT
  Age: 14 Year
  Sex: Male

DRUGS (5)
  1. REFLEX [Suspect]
     Dosage: 315 MG, ONCE, 21 TABLETS
     Route: 048
  2. QUAZEPAM [Suspect]
     Dosage: 140 MG, ONCE, 7 TABLETS
     Route: 048
  3. RESLIN TABLETS 50 [Suspect]
     Dosage: 350 MG, ONCE, 7 TABLETS
     Route: 048
  4. DULOXETINE HYDROCHLORIDE [Suspect]
     Dosage: 140 MG, ONCE, 7 TABLETS
     Route: 048
  5. ZOLPIDEM TARTRATE [Suspect]
     Dosage: 70 MG, ONCE, 7 TABLETS
     Route: 048

REACTIONS (1)
  - Intentional overdose [Unknown]
